FAERS Safety Report 6466153-9 (Version None)
Quarter: 2009Q4

REPORT INFORMATION
  Report Type: 
  Country: None (occurrence: None)
  Receive Date: 20091202
  Receipt Date: 20091124
  Transmission Date: 20100525
  Serious: Yes (Other)
  Sender: FDA-Public Use
  Company Number: GB-TYCO HEALTHCARE/MALLINCKRODT-T200902227

PATIENT

DRUGS (3)
  1. SODIUM IODIDE I 131 [Suspect]
     Indication: HYPERTHYROIDISM
     Dosage: 222 MBQ (6 MCI), SINGLE
  2. CARBIMAZOLE [Concomitant]
     Indication: HYPERTHYROIDISM
     Dosage: UNK
  3. CARBIMAZOLE [Concomitant]
     Dosage: UNK

REACTIONS (1)
  - VOCAL CORD PARALYSIS [None]
